FAERS Safety Report 8848068 (Version 2)
Quarter: 2015Q3

REPORT INFORMATION
  Report Type: Report from Study
  Country: US (occurrence: US)
  Receive Date: 20121018
  Receipt Date: 20150820
  Transmission Date: 20151125
  Serious: Yes (Hospitalization)
  Sender: FDA-Public Use
  Company Number: US-ROCHE-1140394

PATIENT
  Age: 11 Year
  Sex: Female
  Weight: 21.4 kg

DRUGS (13)
  1. PROTROPIN [Suspect]
     Active Substance: SOMATREM
     Route: 058
  2. NUTROPIN [Suspect]
     Active Substance: SOMATROPIN
     Indication: GONADAL DYSGENESIS
     Route: 065
  3. NUTROPIN [Suspect]
     Active Substance: SOMATROPIN
     Route: 065
  4. NUTROPIN [Suspect]
     Active Substance: SOMATROPIN
     Route: 065
  5. PROVERA [Concomitant]
     Active Substance: MEDROXYPROGESTERONE ACETATE
     Route: 065
  6. PROTROPIN [Suspect]
     Active Substance: SOMATREM
     Route: 058
  7. IMIPRAMINE [Concomitant]
     Active Substance: IMIPRAMINE
     Route: 065
  8. PREMARIN [Concomitant]
     Active Substance: ESTROGENS, CONJUGATED
     Route: 065
  9. PROTROPIN [Suspect]
     Active Substance: SOMATREM
     Indication: TURNER^S SYNDROME
     Dosage: DAILY DOSE: 5 MG/CC
     Route: 058
     Dates: start: 19930917
  10. NUTROPIN [Suspect]
     Active Substance: SOMATROPIN
     Dosage: 0.35 MG/KG/WEEK
     Route: 065
  11. PROTROPIN [Suspect]
     Active Substance: SOMATREM
     Route: 058
  12. NUTROPIN [Suspect]
     Active Substance: SOMATROPIN
     Indication: TURNER^S SYNDROME
     Route: 065
  13. ADDERALL [Concomitant]
     Active Substance: AMPHETAMINE ASPARTATE\AMPHETAMINE SULFATE\DEXTROAMPHETAMINE SACCHARATE\DEXTROAMPHETAMINE SULFATE
     Route: 065

REACTIONS (4)
  - Epistaxis [Unknown]
  - Rash erythematous [Unknown]
  - Thirst [Unknown]
  - Neoplasm [Recovered/Resolved]

NARRATIVE: CASE EVENT DATE: 19951005
